FAERS Safety Report 7599971-4 (Version None)
Quarter: 2011Q2

REPORT INFORMATION
  Report Type: 
  Country: None (occurrence: None)
  Receive Date: 20110629
  Receipt Date: 20110624
  Transmission Date: 20111010
  Serious: Yes (Hospitalization)
  Sender: FDA-Public Use
  Company Number: ACO_23021_2011

PATIENT
  Age: 60 Year
  Sex: Male
  Weight: 77.1 kg

DRUGS (5)
  1. AMPYRA [Suspect]
     Indication: GAIT DISTURBANCE
     Dosage: 10 MG, BID, ORAL 10 MG, QD, ORAL 10 MG, QD ORAL
     Route: 048
     Dates: start: 20100805, end: 20101123
  2. AMPYRA [Suspect]
     Indication: GAIT DISTURBANCE
     Dosage: 10 MG, BID, ORAL 10 MG, QD, ORAL 10 MG, QD ORAL
     Route: 048
     Dates: start: 20100101, end: 20110402
  3. AMPYRA [Suspect]
     Indication: GAIT DISTURBANCE
     Dosage: 10 MG, BID, ORAL 10 MG, QD, ORAL 10 MG, QD ORAL
     Route: 048
     Dates: start: 20110404
  4. WARFARIN SODIUM [Concomitant]
  5. AMIODARONE (AMIODARONE) [Concomitant]

REACTIONS (3)
  - MULTIPLE SCLEROSIS RELAPSE [None]
  - RENAL PAIN [None]
  - MUSCLE SPASMS [None]
